FAERS Safety Report 6386890-4 (Version None)
Quarter: 2009Q4

REPORT INFORMATION
  Report Type: 
  Country: None (occurrence: None)
  Receive Date: 20091001
  Receipt Date: 20091001
  Transmission Date: 20100525
  Serious: No
  Sender: FDA-Public Use
  Company Number: None

PATIENT
  Age: 92 Year
  Sex: Male
  Weight: 154 kg

DRUGS (6)
  1. XOPENEX [Suspect]
     Dosage: 0.63 MG Q4HOURS PRN INH  (9/8/09 2100 -} 9/8 @2300
     Route: 055
  2. LOVENOX [Concomitant]
  3. NORVASC [Concomitant]
  4. PULMOZYME [Concomitant]
  5. VASOTEC [Concomitant]
  6. APRESOLINE [Concomitant]

REACTIONS (5)
  - BLOOD PRESSURE INCREASED [None]
  - MALAISE [None]
  - OXYGEN SATURATION DECREASED [None]
  - RESPIRATORY RATE INCREASED [None]
  - TREMOR [None]
